FAERS Safety Report 5680015-6 (Version None)
Quarter: 2008Q1

REPORT INFORMATION
  Report Type: 
  Country: None (occurrence: None)
  Receive Date: 20080325
  Receipt Date: 20080325
  Transmission Date: 20080703
  Serious: No
  Sender: FDA-Public Use
  Company Number: None

PATIENT
  Age: 47 Year
  Sex: Male
  Weight: 81.6475 kg

DRUGS (2)
  1. ALBUTEROL [Suspect]
     Indication: ASTHMA
     Dosage: AS NEEDED  APPROX.20 INHALAT   INHAL
     Route: 055
     Dates: start: 20080305, end: 20080323
  2. ALBUTEROL [Suspect]
     Indication: SEASONAL ALLERGY
     Dosage: AS NEEDED  APPROX.20 INHALAT   INHAL
     Route: 055
     Dates: start: 20080305, end: 20080323

REACTIONS (2)
  - DRUG EFFECT DECREASED [None]
  - PHARMACEUTICAL PRODUCT COMPLAINT [None]
